FAERS Safety Report 21468472 (Version 1)
Quarter: 2022Q4

REPORT INFORMATION
  Report Type: Spontaneous
  Country: US (occurrence: None)
  Receive Date: 20221017
  Receipt Date: 20221017
  Transmission Date: 20230112
  Serious: Yes (Death)
  Sender: FDA-Public Use
  Company Number: None

PATIENT
  Sex: Female

DRUGS (15)
  1. AMBRISENTAN [Suspect]
     Active Substance: AMBRISENTAN
     Indication: Pulmonary arterial hypertension
     Dosage: FREQUENCY : AS DIRECTED;?
     Route: 048
     Dates: start: 20190926
  2. ASMANEX [Concomitant]
     Active Substance: MOMETASONE FUROATE
  3. AVASTIN INJ [Concomitant]
  4. CALCIUM [Suspect]
     Active Substance: CALCIUM
  5. FLONASE [Concomitant]
     Active Substance: FLUTICASONE PROPIONATE
  6. IRON [Concomitant]
     Active Substance: IRON
  7. LATAOPROST SOL [Concomitant]
  8. LISINOPRIL [Concomitant]
     Active Substance: LISINOPRIL
  9. MIRTAZAPINE [Concomitant]
     Active Substance: MIRTAZAPINE
  10. VITAMINS [Concomitant]
     Active Substance: VITAMINS
  11. MULTIVITAMIN CAP [Concomitant]
  12. OMEPRAZOLE [Concomitant]
     Active Substance: OMEPRAZOLE
  13. SODIUM POW BICARBON [Concomitant]
  14. TIMOLOL MAL [Concomitant]
  15. TYLENOL [Concomitant]
     Active Substance: ACETAMINOPHEN

REACTIONS (1)
  - Death [None]
